FAERS Safety Report 8248138-5 (Version None)
Quarter: 2012Q1

REPORT INFORMATION
  Report Type: 
  Country: None (occurrence: None)
  Receive Date: 20120330
  Receipt Date: 20120323
  Transmission Date: 20120608
  Serious: Yes (Other)
  Sender: FDA-Public Use
  Company Number: US-BAYER-2011-076603

PATIENT
  Sex: Female
  Weight: 136 kg

DRUGS (5)
  1. REGLAN [Concomitant]
     Dosage: 10 MG, TID
  2. YAZ [Suspect]
     Indication: PREMENSTRUAL SYNDROME
  3. TOPAMAX [Concomitant]
     Dosage: 200 MG, BID
  4. PREVACID [Concomitant]
     Dosage: 30 MG, QD
  5. YAZ [Suspect]
     Indication: CONTRACEPTION
     Dosage: UNK
     Dates: start: 20090901, end: 20100101

REACTIONS (9)
  - PSYCHOLOGICAL TRAUMA [None]
  - PAIN IN EXTREMITY [None]
  - EMOTIONAL DISTRESS [None]
  - FEAR [None]
  - ANXIETY [None]
  - INJURY [None]
  - DYSPNOEA [None]
  - PULMONARY EMBOLISM [None]
  - DEEP VEIN THROMBOSIS [None]
